FAERS Safety Report 5427597-7 (Version None)
Quarter: 2007Q3

REPORT INFORMATION
  Report Type: 
  Country: None (occurrence: None)
  Receive Date: 20070828
  Receipt Date: 20070823
  Transmission Date: 20080115
  Serious: Yes (Death, Hospitalization)
  Sender: FDA-Public Use
  Company Number: JP-AVENTIS-200712012JP

PATIENT
  Sex: Male

DRUGS (4)
  1. TAXOTERE [Suspect]
     Route: 041
  2. FLUOROURACIL [Concomitant]
  3. CISPLATIN [Concomitant]
  4. RADIATION THERAPY [Concomitant]

REACTIONS (1)
  - INTERSTITIAL LUNG DISEASE [None]
